FAERS Safety Report 7621373-2 (Version None)
Quarter: 2011Q3

REPORT INFORMATION
  Report Type: 
  Country: None (occurrence: None)
  Receive Date: 20110719
  Receipt Date: 20110704
  Transmission Date: 20111222
  Serious: Yes (Death)
  Sender: FDA-Public Use
  Company Number: JP-BAYER-2011-017013

PATIENT
  Age: 57 Year
  Sex: Female
  Weight: 41 kg

DRUGS (15)
  1. ASPIRIN [Suspect]
     Indication: HYPERPHOSPHATAEMIA
     Dosage: 100 MG, QD
     Route: 048
     Dates: end: 20091001
  2. NORVASC [Concomitant]
     Dosage: DAILY DOSE 5 MG
     Route: 048
  3. PRAVASTATIN SODIUM [Concomitant]
     Dosage: DAILY DOSE 10 MG
     Route: 048
  4. ONEALFA [Concomitant]
     Dosage: DAILY DOSE .5 ?G
     Route: 048
     Dates: end: 20091001
  5. MERISLON [Concomitant]
     Dosage: DAILY DOSE 12 MG
     Route: 048
  6. SELBEX [Concomitant]
     Dosage: DAILY DOSE 150 MG
     Route: 048
  7. AMOBAN [Concomitant]
     Dosage: DAILY DOSE 7.5 MG
     Route: 048
  8. CARVEDILOL [Concomitant]
     Dosage: DAILY DOSE 20 MG
     Route: 048
  9. ATARAX [Concomitant]
     Dosage: DAILY DOSE 50 MG
     Route: 048
  10. MUCODYNE [Concomitant]
     Dosage: DAILY DOSE 750 MG
     Route: 048
  11. NESPO [Concomitant]
     Dosage: 180 ?G, Q2WK
     Route: 042
  12. DEPAS [Concomitant]
     Dosage: DAILY DOSE 1 MG
     Route: 048
  13. FOSRENOL [Concomitant]
     Indication: HYPERPHOSPHATAEMIA
     Dosage: 250 MG, TID
     Route: 048
     Dates: start: 20090526, end: 20091001
  14. VOLTAREN [Concomitant]
     Dosage: DAILY DOSE 50 MG
     Route: 048
  15. FESIN [Concomitant]
     Dosage: 40 MG, Q2WK
     Route: 042

REACTIONS (1)
  - CEREBRAL HAEMORRHAGE [None]
